FAERS Safety Report 4634898-9 (Version None)
Quarter: 2005Q2

REPORT INFORMATION
  Report Type: 
  Country: None (occurrence: None)
  Receive Date: 20050414
  Receipt Date: 20050405
  Transmission Date: 20051028
  Serious: Yes (Hospitalization)
  Sender: FDA-Public Use
  Company Number: 200511208FR

PATIENT
  Age: 79 Year
  Sex: Female
  Weight: 55 kg

DRUGS (6)
  1. ARAVA [Suspect]
     Indication: RHEUMATOID ARTHRITIS
     Route: 048
     Dates: start: 20021025, end: 20050319
  2. ELISOR [Concomitant]
     Route: 048
     Dates: start: 20031122
  3. REMICADE [Concomitant]
     Indication: RHEUMATOID ARTHRITIS
     Route: 042
     Dates: start: 20020405, end: 20030724
  4. ACTONEL [Concomitant]
     Route: 048
     Dates: start: 20030515
  5. VOLTAREN [Concomitant]
  6. CORTANCYL [Concomitant]
     Route: 048

REACTIONS (8)
  - ANAEMIA MACROCYTIC [None]
  - APLASTIC ANAEMIA [None]
  - BALANCE DISORDER [None]
  - DIFFICULTY IN WALKING [None]
  - LUNG CREPITATION [None]
  - PERIPHERAL SENSORY NEUROPATHY [None]
  - POLYNEUROPATHY [None]
  - RENAL FAILURE [None]
